FAERS Safety Report 9913712 (Version 5)
Quarter: 2014Q2

REPORT INFORMATION
  Report Type: Spontaneous
  Country: US (occurrence: US)
  Receive Date: 20140220
  Receipt Date: 20140514
  Transmission Date: 20141212
  Serious: Yes (Hospitalization)
  Sender: FDA-Public Use
  Company Number: US-BAXTER-2014BAX008140

PATIENT
  Sex: Female
  Weight: 62.5 kg

DRUGS (2)
  1. DIANEAL LOW CALCIUM [Suspect]
     Indication: RENAL FAILURE CHRONIC
     Route: 033
     Dates: start: 2007
  2. DIANEAL LOW CALCIUM [Suspect]
     Indication: PERITONEAL DIALYSIS

REACTIONS (5)
  - Encephalitis [Recovering/Resolving]
  - Back injury [Recovering/Resolving]
  - Liver disorder [Recovering/Resolving]
  - Haemorrhage [Not Recovered/Not Resolved]
  - Encephalopathy [Unknown]
